FAERS Safety Report 20856300 (Version 1)
Quarter: 2022Q2

REPORT INFORMATION
  Report Type: Spontaneous
  Country: US (occurrence: US)
  Receive Date: 20220520
  Receipt Date: 20220520
  Transmission Date: 20220721
  Serious: No
  Sender: FDA-Public Use
  Company Number: US-BIOMARINAP-US-2022-143311

PATIENT
  Age: 3 Year
  Sex: Female

DRUGS (1)
  1. BRINEURA [Suspect]
     Active Substance: CERLIPONASE ALFA
     Indication: Neuronal ceroid lipofuscinosis
     Dosage: UNK, QOW
     Route: 065
     Dates: start: 20211223

REACTIONS (2)
  - Fatigue [Recovered/Resolved]
  - Pyrexia [Recovered/Resolved]
